FAERS Safety Report 7199596-9 (Version None)
Quarter: 2010Q4

REPORT INFORMATION
  Report Type: 
  Country: None (occurrence: None)
  Receive Date: 20101228
  Receipt Date: 20101217
  Transmission Date: 20110411
  Serious: Yes (Other)
  Sender: FDA-Public Use
  Company Number: US-JNJFOC-20101206703

PATIENT
  Sex: Male
  Weight: 108.86 kg

DRUGS (3)
  1. RISPERDAL CONSTA [Suspect]
     Indication: ILL-DEFINED DISORDER
     Route: 030
  2. HALDOL [Suspect]
     Indication: ILL-DEFINED DISORDER
     Route: 030
  3. RISPERIDONE [Suspect]
     Indication: ILL-DEFINED DISORDER
     Route: 048

REACTIONS (4)
  - ABNORMAL LOSS OF WEIGHT [None]
  - DIABETES MELLITUS [None]
  - RESPIRATORY TRACT IRRITATION [None]
  - SINUS DISORDER [None]
